FAERS Safety Report 5392650-3 (Version None)
Quarter: 2007Q3

REPORT INFORMATION
  Report Type: 
  Country: None (occurrence: None)
  Receive Date: 20070720
  Receipt Date: 20070710
  Transmission Date: 20080115
  Serious: Yes (Hospitalization)
  Sender: FDA-Public Use
  Company Number: IT-ABBOTT-07P-083-0373948-00

PATIENT
  Sex: Female

DRUGS (1)
  1. KLACID I.V. [Suspect]
     Indication: LYMPHADENITIS
     Route: 042
     Dates: start: 20070626, end: 20070629

REACTIONS (1)
  - PHLEBITIS [None]
